FAERS Safety Report 5032645-2 (Version None)
Quarter: 2006Q2

REPORT INFORMATION
  Report Type: 
  Country: None (occurrence: None)
  Receive Date: 20060620
  Receipt Date: 20060609
  Transmission Date: 20061013
  Serious: Yes (Other)
  Sender: FDA-Public Use
  Company Number: 2006074009

PATIENT
  Age: 76 Year
  Sex: Male
  Weight: 180 kg

DRUGS (4)
  1. NEURONTIN [Suspect]
     Indication: NEUROPATHY
     Dates: start: 19970101
  2. CODEINE (CODEINE) [Suspect]
     Indication: ILL-DEFINED DISORDER
  3. TAMBOCOR [Concomitant]
  4. MULTIVITAMIN [Concomitant]

REACTIONS (9)
  - DRUG DEPENDENCE [None]
  - DRUG HYPERSENSITIVITY [None]
  - DRUG INEFFECTIVE [None]
  - DRUG WITHDRAWAL SYNDROME [None]
  - HYPOAESTHESIA [None]
  - NEUROPATHY [None]
  - OSTEOARTHRITIS [None]
  - PAIN IN EXTREMITY [None]
  - SURGERY [None]
